FAERS Safety Report 8433077 (Version 7)
Quarter: 2014Q3

REPORT INFORMATION
  Report Type: Report from Study
  Country: BR (occurrence: BR)
  Receive Date: 20120229
  Receipt Date: 20140919
  Transmission Date: 20150326
  Serious: Yes (Hospitalization, Other)
  Sender: FDA-Public Use
  Company Number: BR-ROCHE-730666

PATIENT
  Age: 61 Year
  Sex: Female
  Weight: 68 kg

DRUGS (24)
  1. GALVUS [Concomitant]
     Active Substance: VILDAGLIPTIN
     Indication: APHTHOUS STOMATITIS
     Dosage: DRUG REPORTED AS GALVUS MET (VILDAGLIPTIN + METFORMIN) 50 MG + 500 MG
     Route: 065
  2. ATENOLOL. [Concomitant]
     Active Substance: ATENOLOL
  3. GLIFAGE [Concomitant]
     Active Substance: METFORMIN HYDROCHLORIDE
     Route: 065
  4. MABTHERA [Suspect]
     Active Substance: RITUXIMAB
     Indication: POLIOMYELITIS
     Dosage: ROUTE: ENDOVENOUS, FORM: INFUSION, DOSE:500 MG/50 ML, FREQUENCY: 1000 MG EACH INFUSION
     Route: 042
     Dates: start: 20100325, end: 20100526
  5. MABTHERA [Suspect]
     Active Substance: RITUXIMAB
     Indication: FIBROMYALGIA
     Dosage: ROUTE: ENDOVENOUS, FORM: INFUSION, DOSE:500 MG/50 ML, FREQUENCY: 1000 MG EACH INFUSION.
     Route: 042
     Dates: start: 20100905, end: 20110719
  6. PREDSIM [Concomitant]
     Active Substance: PREDNISOLONE
     Indication: RHEUMATOID ARTHRITIS
     Route: 065
  7. METHOTREXATE [Concomitant]
     Active Substance: METHOTREXATE
     Route: 065
  8. AMITRIPTYLINE [Concomitant]
     Active Substance: AMITRIPTYLINE
     Route: 065
  9. MABTHERA [Suspect]
     Active Substance: RITUXIMAB
     Indication: RHEUMATOID ARTHRITIS
     Dosage: ROUTE: ENDOVENOUS, FORM: INFUSION, DOSE:500 MG/50 ML, FREQUENCY: 1000 MG EACH INFUSION
     Route: 042
     Dates: start: 20091101, end: 20091204
  10. VITAMIN D3 [Concomitant]
     Active Substance: CHOLECALCIFEROL
  11. FRONTAL [Concomitant]
     Active Substance: ALPRAZOLAM
     Indication: SLEEP DISORDER THERAPY
     Route: 065
  12. PRELONE [Concomitant]
     Active Substance: PREDNISOLONE
     Route: 065
  13. PRELONE [Concomitant]
     Active Substance: PREDNISOLONE
     Route: 065
  14. DIAMICRON [Concomitant]
     Active Substance: GLICLAZIDE
     Route: 065
  15. ABLOK [Concomitant]
     Active Substance: ATENOLOL
     Route: 065
  16. OSTEONUTRI [Concomitant]
     Route: 065
  17. FRONTAL [Concomitant]
     Active Substance: ALPRAZOLAM
     Route: 065
  18. TRAMAL [Concomitant]
     Active Substance: TRAMADOL
  19. MOTRIN [Concomitant]
     Active Substance: IBUPROFEN
  20. DIAMICRON [Concomitant]
     Active Substance: GLICLAZIDE
     Dosage: 02 TABLETS IN THE MORNING
     Route: 065
  21. FLUOXETINE [Concomitant]
     Active Substance: FLUOXETINE\FLUOXETINE HYDROCHLORIDE
     Indication: ANXIETY
     Dosage: 20 MG IN THE MORINIG
     Route: 065
  22. PRELONE [Suspect]
     Active Substance: PREDNISOLONE
     Indication: PRODUCT USED FOR UNKNOWN INDICATION
     Route: 065
  23. FRONTAL [Concomitant]
     Active Substance: ALPRAZOLAM
     Dosage: 0.5 MG AT NIGHT
     Route: 065
  24. OMEPRAZOLE. [Concomitant]
     Active Substance: OMEPRAZOLE

REACTIONS (19)
  - Appendicitis [Recovered/Resolved]
  - Malaise [Recovered/Resolved]
  - Fall [Recovered/Resolved]
  - Blood creatine phosphokinase increased [Recovered/Resolved]
  - Arthralgia [Recovered/Resolved]
  - Joint dislocation [Recovered/Resolved]
  - Osteoporosis [Recovering/Resolving]
  - Herpes simplex [Recovering/Resolving]
  - Diarrhoea [Unknown]
  - Pneumonia [Recovered/Resolved]
  - Abdominal discomfort [Recovered/Resolved]
  - Arthropathy [Not Recovered/Not Resolved]
  - Bone erosion [Not Recovered/Not Resolved]
  - Depressed mood [Recovered/Resolved]
  - Abdominal distension [Recovered/Resolved]
  - Neoplasm [Recovered/Resolved]
  - Pain [Not Recovered/Not Resolved]
  - Immunodeficiency [Recovering/Resolving]
  - Urinary tract infection [Unknown]

NARRATIVE: CASE EVENT DATE: 20091205
